FAERS Safety Report 22184989 (Version 2)
Quarter: 2023Q2

REPORT INFORMATION
  Report Type: Spontaneous
  Country: RU (occurrence: RU)
  Receive Date: 20230407
  Receipt Date: 20230424
  Transmission Date: 20230721
  Serious: Yes (Death)
  Sender: FDA-Public Use
  Company Number: RU-ABBVIE-4719726

PATIENT
  Age: 78 Year
  Sex: Male

DRUGS (3)
  1. KALETRA [Suspect]
     Active Substance: LOPINAVIR\RITONAVIR
     Indication: COVID-19 treatment
     Dosage: 400/100 MILLIGRAM TWICE A DAY?DRUG STRAT DATE: 23 JUN 2020
     Route: 065
     Dates: end: 20200701
  2. ACTEMRA [Suspect]
     Active Substance: TOCILIZUMAB
     Indication: COVID-19 treatment
     Route: 065
     Dates: start: 20200623, end: 20200701
  3. TOFACITINIB CITRATE [Suspect]
     Active Substance: TOFACITINIB CITRATE
     Indication: COVID-19 treatment
     Route: 065
     Dates: start: 20200622, end: 20200630

REACTIONS (5)
  - COVID-19 pneumonia [Fatal]
  - Asthenia [Fatal]
  - Dyspnoea [Fatal]
  - Pyrexia [Fatal]
  - SARS-CoV-2 test positive [Fatal]

NARRATIVE: CASE EVENT DATE: 20200618
